FAERS Safety Report 9187765 (Version 1)
Quarter: 2013Q1

REPORT INFORMATION
  Report Type: Spontaneous
  Country: US (occurrence: US)
  Receive Date: 20130325
  Receipt Date: 20130325
  Transmission Date: 20140127
  Serious: No
  Sender: FDA-Public Use
  Company Number: US-MYLANLABS-2012S1006990

PATIENT
  Age: 81 Year
  Sex: Female

DRUGS (5)
  1. FENTANYL TRANSDERMAL SYSTEM [Suspect]
     Indication: BACK PAIN
     Dosage: Q3D
     Route: 062
     Dates: start: 20120318, end: 20120327
  2. LIDODERM [Concomitant]
     Indication: PAIN
     Route: 062
  3. MOBIC [Concomitant]
     Indication: ARTHRITIS
     Route: 048
  4. ALPRAZOLAM [Concomitant]
     Indication: INSOMNIA
     Route: 048
  5. SIMVASTATIN [Concomitant]
     Indication: BLOOD CHOLESTEROL INCREASED
     Route: 048

REACTIONS (1)
  - Lethargy [Recovering/Resolving]
